FAERS Safety Report 4652834-6 (Version None)
Quarter: 2005Q2

REPORT INFORMATION
  Report Type: 
  Country: None (occurrence: None)
  Receive Date: 20050502
  Receipt Date: 20050421
  Transmission Date: 20051028
  Serious: Yes (Hospitalization)
  Sender: FDA-Public Use
  Company Number: HQWYE188122APR05

PATIENT
  Age: 28 Month
  Sex: Male

DRUGS (5)
  1. OROKEN (CEFIXIME) [Suspect]
     Indication: RHINOTRACHEITIS
     Dosage: ORAL
     Route: 048
     Dates: start: 20050304, end: 20050309
  2. BETAMETHASONE [Suspect]
     Indication: RHINOTRACHEITIS
     Dosage: 1.5 MG PER DAY, ORAL
     Route: 048
     Dates: start: 20050304, end: 20050309
  3. OXOMEMAZINE [Concomitant]
  4. COQUELUSEDAL (CAMPHOR/EPHEDRINE/GELSEMIUM/GRINDELIA/NIAOULI OIL/PHENOB [Concomitant]
  5. GUAIPHENESIN [Concomitant]

REACTIONS (1)
  - LOBAR PNEUMONIA [None]
